FAERS Safety Report 17801591 (Version 1)
Quarter: 2020Q2

REPORT INFORMATION
  Report Type: Spontaneous
  Country: IT (occurrence: IT)
  Receive Date: 20200519
  Receipt Date: 20200519
  Transmission Date: 20200714
  Serious: Yes (Hospitalization)
  Sender: FDA-Public Use
  Company Number: IT-TEVA-2020-IT-1236270

PATIENT
  Age: 1 Year
  Sex: Female
  Weight: 12 kg

DRUGS (1)
  1. ACICLOVIR [Suspect]
     Active Substance: ACYCLOVIR
     Indication: MENINGITIS VIRAL
     Dosage: 450MG
     Route: 041
     Dates: start: 20200424, end: 20200427

REACTIONS (2)
  - Neutropenia [Not Recovered/Not Resolved]
  - Hypertransaminasaemia [Not Recovered/Not Resolved]

NARRATIVE: CASE EVENT DATE: 20200428
